FAERS Safety Report 7244627-0 (Version None)
Quarter: 2011Q1

REPORT INFORMATION
  Report Type: 
  Country: None (occurrence: None)
  Receive Date: 20110125
  Receipt Date: 20110118
  Transmission Date: 20110831
  Serious: Yes (Hospitalization)
  Sender: FDA-Public Use
  Company Number: SE-MERCK-1101SWE00017

PATIENT
  Age: 64 Year
  Sex: Male

DRUGS (14)
  1. ZOCOR [Suspect]
     Indication: HYPERLIPIDAEMIA
     Route: 048
     Dates: start: 20100301, end: 20100901
  2. ZOCOR [Suspect]
     Indication: HYPERTRIGLYCERIDAEMIA
     Route: 048
     Dates: start: 20100301, end: 20100901
  3. DIPYRIDAMOLE [Concomitant]
     Route: 048
  4. ALFUZOSIN HYDROCHLORIDE [Concomitant]
     Route: 001
  5. FELODIPINE [Concomitant]
     Route: 065
  6. HYDROCHLOROTHIAZIDE [Concomitant]
     Route: 048
  7. CITALOPRAM [Concomitant]
     Route: 048
  8. EZETIMIBE [Suspect]
     Indication: HYPERLIPIDAEMIA
     Route: 048
     Dates: start: 20100701, end: 20100901
  9. ASPIRIN [Concomitant]
     Route: 048
  10. SPIRONOLACTONE [Concomitant]
     Route: 048
  11. ENALAPRIL MALEATE [Concomitant]
     Route: 048
  12. EZETIMIBE [Suspect]
     Indication: HYPERTRIGLYCERIDAEMIA
     Route: 048
     Dates: start: 20100701, end: 20100901
  13. FINASTERIDE [Concomitant]
     Route: 048
  14. TOLTERODINE TARTRATE [Concomitant]
     Route: 048

REACTIONS (3)
  - DYSPNOEA [None]
  - MUSCULAR WEAKNESS [None]
  - SENSORY DISTURBANCE [None]
